FAERS Safety Report 14378260 (Version 28)
Quarter: 2020Q2

REPORT INFORMATION
  Report Type: Spontaneous
  Country: US (occurrence: US)
  Receive Date: 20180111
  Receipt Date: 20200410
  Transmission Date: 20200713
  Serious: Yes (Hospitalization, Disabling, Other)
  Sender: FDA-Public Use
  Company Number: US-ACTELION-A-NJ2018-165506

PATIENT
  Age: 89 Year
  Sex: Female
  Weight: 47.62 kg

DRUGS (29)
  1. BUMETANIDE. [Concomitant]
     Active Substance: BUMETANIDE
     Dosage: 1 MG, QD AND PRN
     Route: 048
  2. METAMUCIL [Concomitant]
     Active Substance: PLANTAGO SEED
     Dosage: UNK
  3. TYLENOL [Concomitant]
     Active Substance: ACETAMINOPHEN
     Dosage: UNK, PRN
  4. STOOL SOFTENER (DOCUSATE) [Concomitant]
     Active Substance: DOCUSATE
  5. CARVEDILOL. [Concomitant]
     Active Substance: CARVEDILOL
     Dosage: 6.25 MG, UNK
     Route: 048
  6. NITROSTAT [Concomitant]
     Active Substance: NITROGLYCERIN
     Dosage: 0.4 MG, PRN
     Route: 060
  7. VITAMIN C [Concomitant]
     Active Substance: ASCORBIC ACID
     Dosage: 1000 MG, QD
     Route: 048
  8. PENICILLIN [Concomitant]
     Active Substance: PENICILLIN
  9. LEVOFLOXACIN. [Concomitant]
     Active Substance: LEVOFLOXACIN
  10. COQ10 [Concomitant]
     Active Substance: UBIDECARENONE
     Dosage: 150 MG, QD
     Route: 048
  11. VOLTAREN [Concomitant]
     Active Substance: DICLOFENAC SODIUM
     Dosage: 1 %, PRN, GEL AT NIGHT
  12. PERINDOPRIL ERBUMINE. [Concomitant]
     Active Substance: PERINDOPRIL ERBUMINE
     Dosage: 8 MG, QD
     Route: 048
  13. WARFARIN [Concomitant]
     Active Substance: WARFARIN
  14. OPSUMIT [Suspect]
     Active Substance: MACITENTAN
     Indication: PULMONARY ARTERIAL HYPERTENSION
     Dosage: 10 MG, QD
     Route: 048
     Dates: start: 20150302
  15. ANORO ELLIPTA [Concomitant]
     Active Substance: UMECLIDINIUM BROMIDE\VILANTEROL TRIFENATATE
     Dosage: 62.5 - 25 MCG, UNK
     Route: 055
  16. COREG CR [Concomitant]
     Active Substance: CARVEDILOL PHOSPHATE
     Dosage: 10 MG, UNK
     Dates: start: 20131017
  17. CEFEPIME [Suspect]
     Active Substance: CEFEPIME HYDROCHLORIDE
     Indication: PRODUCT USED FOR UNKNOWN INDICATION
     Route: 065
  18. FISH OIL [Concomitant]
     Active Substance: FISH OIL
     Dosage: 1200 MG, QD
  19. MORPHINE [Concomitant]
     Active Substance: MORPHINE
  20. OPSUMIT [Suspect]
     Active Substance: MACITENTAN
     Dosage: 10 MG, QD
     Route: 048
  21. ADEMPAS [Concomitant]
     Active Substance: RIOCIGUAT
     Dosage: 0.5 MG, TID
     Route: 065
  22. ATORVASTATIN CALCIUM. [Concomitant]
     Active Substance: ATORVASTATIN CALCIUM
     Dosage: 10 MG, QD
     Route: 048
     Dates: start: 20130430
  23. CALCIUM [Concomitant]
     Active Substance: CALCIUM
     Dosage: 1000 MG, QD
  24. PANTOPRAZOLE SODIUM. [Concomitant]
     Active Substance: PANTOPRAZOLE SODIUM
     Dosage: 40 MG, BID
     Route: 048
  25. ADEMPAS [Concomitant]
     Active Substance: RIOCIGUAT
     Dosage: UNK
     Dates: start: 20181030
  26. ALBUTEROL SULFATE. [Concomitant]
     Active Substance: ALBUTEROL SULFATE
     Dosage: 5 MG/ML, UNK
     Dates: start: 20141105
  27. POTASSIUM CHLORIDE. [Concomitant]
     Active Substance: POTASSIUM CHLORIDE
     Dosage: 20 MEQ, QD
     Dates: start: 20140311
  28. VITAMIN D [Concomitant]
     Active Substance: VITAMIN D NOS
     Dosage: 1000 MG, 5000 EVERY OTHER DAY
  29. WARFARIN SODIUM. [Concomitant]
     Active Substance: WARFARIN SODIUM
     Dosage: 5 MG, QD
     Route: 048
     Dates: start: 20091106

REACTIONS (51)
  - Fluid retention [Recovering/Resolving]
  - Dyspnoea [Unknown]
  - Wheezing [Recovered/Resolved]
  - Platelet count decreased [Unknown]
  - Cardiomegaly [Recovered/Resolved]
  - Headache [Unknown]
  - Sinus disorder [Not Recovered/Not Resolved]
  - Haemoglobin decreased [Unknown]
  - Malaise [Unknown]
  - Pulmonary oedema [Not Recovered/Not Resolved]
  - Peripheral swelling [Unknown]
  - Abdominal distension [Unknown]
  - Hypoxia [Recovered/Resolved]
  - Gastrointestinal haemorrhage [Recovering/Resolving]
  - Intestinal obstruction [Not Recovered/Not Resolved]
  - Kidney infection [Not Recovered/Not Resolved]
  - Seasonal allergy [Unknown]
  - Haemorrhage [Unknown]
  - Pain [Unknown]
  - Pulmonary hypertension [Unknown]
  - White blood cell count decreased [Unknown]
  - Respiratory failure [Recovered/Resolved]
  - Chronic kidney disease [Recovering/Resolving]
  - Anaemia [Unknown]
  - Pseudomonas infection [Unknown]
  - Weight increased [Unknown]
  - Back injury [Not Recovered/Not Resolved]
  - Dyspepsia [Unknown]
  - Fall [Recovered/Resolved]
  - Lung infiltration [Unknown]
  - Asthenia [Not Recovered/Not Resolved]
  - Haematocrit decreased [Unknown]
  - Back pain [Not Recovered/Not Resolved]
  - Anxiety [Unknown]
  - Unevaluable event [Unknown]
  - Pneumonia [Unknown]
  - Influenza [Unknown]
  - Chest pain [Recovered/Resolved]
  - Dizziness [Recovering/Resolving]
  - Confusional state [Unknown]
  - Red blood cell count decreased [Unknown]
  - Oedema [Recovered/Resolved]
  - Transfusion [Not Recovered/Not Resolved]
  - Incontinence [Unknown]
  - Blood blister [Unknown]
  - Chronic obstructive pulmonary disease [Recovering/Resolving]
  - Lung opacity [Recovered/Resolved]
  - Urinary tract infection [Recovered/Resolved]
  - Cough [Unknown]
  - Neck pain [Unknown]
  - Sinusitis [Unknown]

NARRATIVE: CASE EVENT DATE: 20171230
